FAERS Safety Report 7910193-7 (Version None)
Quarter: 2011Q4

REPORT INFORMATION
  Report Type: 
  Country: None (occurrence: None)
  Receive Date: 20111111
  Receipt Date: 20111021
  Transmission Date: 20120403
  Serious: Yes (Disabling)
  Sender: FDA-Public Use
  Company Number: DE-ROCHE-1010684

PATIENT
  Age: 55 Year
  Sex: Female
  Weight: 75 kg

DRUGS (5)
  1. EPIRUBICIN HYDROCHLORIDE [Suspect]
     Indication: BREAST CANCER
     Route: 042
  2. FLUOROURACIL [Suspect]
     Indication: BREAST CANCER
     Route: 042
  3. CYCLOPHOSPHAMIDE [Suspect]
     Indication: BREAST CANCER
     Route: 042
  4. HERCEPTIN [Suspect]
     Indication: BREAST CANCER
     Dosage: LAST DOSE PRIOR TO SAE 19 OCT 2011
     Route: 058
     Dates: start: 20101027
  5. DOCETAXEL [Suspect]
     Indication: BREAST CANCER
     Route: 042

REACTIONS (1)
  - ENDOMETRIAL CANCER [None]
